FAERS Safety Report 7481979-0 (Version None)
Quarter: 2011Q2

REPORT INFORMATION
  Report Type: 
  Country: None (occurrence: None)
  Receive Date: 20110516
  Receipt Date: 20110421
  Transmission Date: 20111010
  Serious: No
  Sender: FDA-Public Use
  Company Number: US-B.I. PHARMACEUTICALS,INC./RIDGEFIELD-2011-BP-06256BP

PATIENT
  Age: 55 Year
  Sex: Male
  Weight: 94.57 kg

DRUGS (7)
  1. SPIRONOLACTONE [Concomitant]
     Dosage: 50 MG
  2. QUINAPRIL HCL [Concomitant]
     Dosage: 30 MG
  3. AMIODARONE HCL [Concomitant]
     Dosage: 800 MG
  4. CARVEDILOL [Concomitant]
     Dosage: 25 MG
  5. PRADAXA [Suspect]
     Indication: ATRIAL FIBRILLATION
     Dosage: 300 MG
     Dates: start: 20110106
  6. PRADAXA [Suspect]
     Route: 048
     Dates: start: 20110302
  7. ASPIRIN [Concomitant]
     Dosage: 81 MG

REACTIONS (2)
  - HAEMORRHAGE [None]
  - INTERNATIONAL NORMALISED RATIO INCREASED [None]
